FAERS Safety Report 22730714 (Version 6)
Quarter: 2023Q4

REPORT INFORMATION
  Report Type: Spontaneous
  Country: US (occurrence: US)
  Receive Date: 20230720
  Receipt Date: 20231114
  Transmission Date: 20240109
  Serious: Yes (Hospitalization)
  Sender: FDA-Public Use
  Company Number: US-XERIS PHARMACEUTICALS-2023XER01973

PATIENT
  Sex: Female

DRUGS (4)
  1. RECORLEV [Suspect]
     Active Substance: LEVOKETOCONAZOLE
     Indication: Cushing^s syndrome
     Dosage: 1 TABLET (150 MG), 2X/DAY
     Route: 048
     Dates: start: 202306, end: 2023
  2. RECORLEV [Suspect]
     Active Substance: LEVOKETOCONAZOLE
     Dosage: 1 TABLET (150 MG), 2X/DAY
     Route: 048
     Dates: start: 2023
  3. RECORLEV [Suspect]
     Active Substance: LEVOKETOCONAZOLE
     Dosage: 1 TABLET (150 MG), 2X/DAY
     Route: 048
     Dates: start: 2023
  4. RECORLEV [Suspect]
     Active Substance: LEVOKETOCONAZOLE
     Dosage: 1 TABLET (150 MG), 3X/DAY
     Route: 048

REACTIONS (25)
  - Chronic obstructive pulmonary disease [Unknown]
  - Blood uric acid increased [Unknown]
  - Haemoglobin increased [Recovering/Resolving]
  - White blood cell count increased [Unknown]
  - Nasopharyngitis [Not Recovered/Not Resolved]
  - Dysphonia [Unknown]
  - Glucose tolerance impaired [Recovering/Resolving]
  - Malaise [Recovering/Resolving]
  - Renal disorder [Recovering/Resolving]
  - Swelling [Not Recovered/Not Resolved]
  - Madarosis [Not Recovered/Not Resolved]
  - Hair disorder [Not Recovered/Not Resolved]
  - Drug effect less than expected [Unknown]
  - Skin laceration [Unknown]
  - Weight increased [Unknown]
  - Alopecia [Not Recovered/Not Resolved]
  - Hypertension [Recovering/Resolving]
  - Headache [Unknown]
  - Fatigue [Recovering/Resolving]
  - Nausea [Recovering/Resolving]
  - Vomiting [Recovering/Resolving]
  - Abdominal distension [Unknown]
  - Cortisol decreased [Unknown]
  - Product dose omission issue [Unknown]
  - Drug ineffective [Unknown]

NARRATIVE: CASE EVENT DATE: 20230101
